FAERS Safety Report 5066459-4 (Version None)
Quarter: 2006Q3

REPORT INFORMATION
  Report Type: 
  Country: None (occurrence: None)
  Receive Date: 20060731
  Receipt Date: 20060731
  Transmission Date: 20061208
  Serious: Yes (Death)
  Sender: FDA-Public Use
  Company Number: None

PATIENT
  Sex: Female
  Weight: 81.71 kg

DRUGS (2)
  1. TAXOTERE [Suspect]
     Dosage: 57 MG
  2. ARENSEP [Concomitant]

REACTIONS (2)
  - ASTHENIA [None]
  - GAIT DISTURBANCE [None]
